FAERS Safety Report 22021661 (Version 2)
Quarter: 2023Q1

REPORT INFORMATION
  Report Type: Spontaneous
  Country: AU (occurrence: AU)
  Receive Date: 20230222
  Receipt Date: 20230222
  Transmission Date: 20230417
  Serious: Yes (Hospitalization, Other)
  Sender: FDA-Public Use
  Company Number: AU-GUERBET / ASPEN AUSTRALIA-AU-20230017

PATIENT
  Age: 66 Year
  Sex: Female
  Weight: 93 kg

DRUGS (1)
  1. OPTIRAY 350 [Suspect]
     Active Substance: IOVERSOL
     Indication: Computerised tomogram neck
     Route: 042
     Dates: start: 20230206, end: 20230206

REACTIONS (2)
  - Dyspnoea [Recovering/Resolving]
  - Throat tightness [Recovering/Resolving]

NARRATIVE: CASE EVENT DATE: 20230206
